FAERS Safety Report 10370891 (Version 1)
Quarter: 2014Q3

REPORT INFORMATION
  Report Type: Spontaneous
  Country: DK (occurrence: DK)
  Receive Date: 20140808
  Receipt Date: 20140808
  Transmission Date: 20150326
  Serious: Yes (Other)
  Sender: FDA-Public Use
  Company Number: DK-TEVA-498980ISR

PATIENT
  Age: 84 Year
  Sex: Female

DRUGS (1)
  1. ALENDRONAT [Suspect]
     Active Substance: ALENDRONATE SODIUM
     Indication: OSTEOPOROSIS
     Dosage: STRENGTH: 70 MG
     Route: 048
     Dates: start: 2008

REACTIONS (2)
  - Osteonecrosis of jaw [Recovering/Resolving]
  - Jaw operation [Unknown]

NARRATIVE: CASE EVENT DATE: 20131230
